FAERS Safety Report 15044647 (Version 2)
Quarter: 2018Q2

REPORT INFORMATION
  Report Type: Spontaneous
  Country: JP (occurrence: JP)
  Receive Date: 20180621
  Receipt Date: 20180621
  Transmission Date: 20180711
  Serious: Yes (Other)
  Sender: FDA-Public Use
  Company Number: PHJP2018JP012692

PATIENT
  Age: 61 Year
  Sex: Female

DRUGS (3)
  1. ANTILYMPHOCYTE IMMUNOGLOBULIN (RABBIT) [Concomitant]
     Active Substance: LAPINE T-LYMPHOCYTE IMMUNE GLOBULIN
     Dosage: UNK
     Route: 065
  2. CICLOSPORIN [Suspect]
     Active Substance: CYCLOSPORINE
     Indication: APLASTIC ANAEMIA
     Dosage: UNK
     Route: 065
  3. ANTILYMPHOCYTE IMMUNOGLOBULIN (RABBIT) [Concomitant]
     Active Substance: LAPINE T-LYMPHOCYTE IMMUNE GLOBULIN
     Indication: APLASTIC ANAEMIA
     Dosage: UNK
     Route: 065

REACTIONS (7)
  - Immune thrombocytopenic purpura [Unknown]
  - Megakaryocytes abnormal [Unknown]
  - Nasopharyngitis [Unknown]
  - Drug ineffective [Unknown]
  - Pancytopenia [Unknown]
  - Renal impairment [Unknown]
  - Platelet count decreased [Unknown]
